FAERS Safety Report 8728719 (Version 3)
Quarter: 2013Q2

REPORT INFORMATION
  Report Type: Spontaneous
  Country: FR (occurrence: FR)
  Receive Date: 20120817
  Receipt Date: 20130405
  Transmission Date: 20140414
  Serious: Yes (Hospitalization)
  Sender: FDA-Public Use
  Company Number: PHHY2012FR070884

PATIENT
  Age: 52 Year
  Sex: Male

DRUGS (5)
  1. COTAREG [Suspect]
     Dosage: 1 DF (80 MG VALSARTAN AND 12.5MG HYDRO), DAILY
     Route: 048
     Dates: start: 2008, end: 20120705
  2. GLICLAZIDE [Suspect]
     Dosage: 1 DF, DAILY
     Route: 048
     Dates: start: 20120412, end: 20120418
  3. DIAMICRON [Suspect]
     Dosage: 1 DF, DAILY
     Route: 048
     Dates: start: 2008, end: 20120412
  4. DIAMICRON [Suspect]
     Dosage: 1 DF, DAILY
     Route: 048
     Dates: start: 20120418, end: 20120705
  5. IBUPROFEN [Concomitant]
     Dosage: 3 DF, DAILY
     Route: 048
     Dates: start: 20120413, end: 20120415

REACTIONS (12)
  - Hepatic failure [Recovering/Resolving]
  - Hepatic necrosis [Recovering/Resolving]
  - Hepatocellular injury [Recovering/Resolving]
  - Blood bilirubin increased [Recovering/Resolving]
  - Chromaturia [Recovering/Resolving]
  - Ocular icterus [Recovering/Resolving]
  - Hepatitis toxic [Recovering/Resolving]
  - Hepatitis acute [Recovering/Resolving]
  - General physical condition abnormal [Recovering/Resolving]
  - Dizziness [Recovering/Resolving]
  - Asthenia [Recovering/Resolving]
  - Fatigue [Recovering/Resolving]
